FAERS Safety Report 17962023 (Version 2)
Quarter: 2020Q3

REPORT INFORMATION
  Report Type: Spontaneous
  Country: US (occurrence: US)
  Receive Date: 20200630
  Receipt Date: 20200706
  Transmission Date: 20201103
  Serious: Yes (Hospitalization)
  Sender: FDA-Public Use
  Company Number: US-PFIZER INC-2019431425

PATIENT
  Age: 78 Year
  Sex: Male

DRUGS (1)
  1. VFEND [Suspect]
     Active Substance: VORICONAZOLE
     Indication: BRONCHOPULMONARY ASPERGILLOSIS
     Dosage: 200 MG, 2X/DAY (TAKE 1 TABLET BY MOUTH EVERY 12 HOURS)
     Route: 048
     Dates: start: 20191001

REACTIONS (1)
  - Aspergillus infection [Unknown]
